FAERS Safety Report 9643723 (Version 1)
Quarter: 2013Q4

REPORT INFORMATION
  Report Type: Spontaneous
  Country: CA (occurrence: CA)
  Receive Date: 20131024
  Receipt Date: 20131024
  Transmission Date: 20140711
  Serious: Yes (Other)
  Sender: FDA-Public Use
  Company Number: CA-TEVA-439585USA

PATIENT
  Sex: Female

DRUGS (1)
  1. NALTREXONE HYDROCHLORIDE TABLET 50MG [Suspect]

REACTIONS (1)
  - Convulsion [Unknown]
